FAERS Safety Report 13877692 (Version 2)
Quarter: 2017Q3

REPORT INFORMATION
  Report Type: Report from Study
  Country: US (occurrence: US)
  Receive Date: 20170817
  Receipt Date: 20170830
  Transmission Date: 20171127
  Serious: Yes (Other)
  Sender: FDA-Public Use
  Company Number: US-PFIZER INC-2017351129

PATIENT
  Age: 31 Year
  Sex: Male

DRUGS (1)
  1. DOXYCYCLINE HYCLATE. [Suspect]
     Active Substance: DOXYCYCLINE HYCLATE
     Indication: Q FEVER
     Dosage: UNK
     Route: 048

REACTIONS (1)
  - Gastrointestinal mucosal necrosis [Recovered/Resolved]
